FAERS Safety Report 8486521-3 (Version None)
Quarter: 2012Q3

REPORT INFORMATION
  Report Type: 
  Country: None (occurrence: None)
  Receive Date: 20120703
  Receipt Date: 20120628
  Transmission Date: 20120928
  Serious: No
  Sender: FDA-Public Use
  Company Number: US-PFIZER INC-2012156189

PATIENT
  Sex: Female

DRUGS (2)
  1. MELOXICAM [Suspect]
     Indication: PAIN
     Dosage: UNK
  2. GABAPENTIN [Suspect]
     Indication: PAIN
     Dosage: UNK

REACTIONS (1)
  - DRUG INEFFECTIVE [None]
